FAERS Safety Report 15330310 (Version 4)
Quarter: 2019Q3

REPORT INFORMATION
  Report Type: Spontaneous
  Country: US (occurrence: US)
  Receive Date: 20180829
  Receipt Date: 20190913
  Transmission Date: 20191004
  Serious: Yes (Hospitalization, Other)
  Sender: FDA-Public Use
  Company Number: US-SA-2018SA239815

PATIENT
  Age: 62 Year
  Sex: Female

DRUGS (11)
  1. AMBIEN [Concomitant]
     Active Substance: ZOLPIDEM TARTRATE
  2. VITAMIN C COMPLEX [Concomitant]
  3. CALCIUM [Concomitant]
     Active Substance: CALCIUM
  4. CALCIUM CARBONATE. [Concomitant]
     Active Substance: CALCIUM CARBONATE
  5. FOSAMAX [Concomitant]
     Active Substance: ALENDRONATE SODIUM
  6. AUBAGIO [Suspect]
     Active Substance: TERIFLUNOMIDE
     Indication: MULTIPLE SCLEROSIS
     Dosage: 1 DF, QD, TABLET
     Route: 048
     Dates: start: 201807
  7. AUBAGIO [Suspect]
     Active Substance: TERIFLUNOMIDE
     Dosage: 1 DF, QD
     Route: 048
     Dates: start: 201903
  8. LEXAPRO [Concomitant]
     Active Substance: ESCITALOPRAM OXALATE
  9. LOVENOX [Concomitant]
     Active Substance: ENOXAPARIN SODIUM
  10. XANAX [Concomitant]
     Active Substance: ALPRAZOLAM
  11. LIPITOR [Concomitant]
     Active Substance: ATORVASTATIN CALCIUM

REACTIONS (10)
  - Non-small cell lung cancer [Unknown]
  - Dizziness [Unknown]
  - Cough [Unknown]
  - Condition aggravated [Unknown]
  - Depression [Unknown]
  - Pulmonary embolism [Unknown]
  - Pneumonia [Unknown]
  - Small cell lung cancer [Unknown]
  - Musculoskeletal stiffness [Unknown]
  - Atrial fibrillation [Unknown]

NARRATIVE: CASE EVENT DATE: 2018
